FAERS Safety Report 6807633-3 (Version None)
Quarter: 2010Q2

REPORT INFORMATION
  Report Type: 
  Country: None (occurrence: None)
  Receive Date: 20100629
  Receipt Date: 20090504
  Transmission Date: 20101027
  Serious: No
  Sender: FDA-Public Use
  Company Number: US-PFIZER INC-2008095923

PATIENT
  Sex: Female
  Weight: 83.91 kg

DRUGS (6)
  1. ZYVOX [Suspect]
     Dosage: UNK
     Dates: start: 20081031, end: 20081101
  2. NEXIUM [Concomitant]
  3. VYTORIN [Concomitant]
  4. VALSARTAN [Concomitant]
  5. PIOGLITAZONE [Concomitant]
  6. PAROXETINE [Concomitant]

REACTIONS (6)
  - ABDOMINAL DISCOMFORT [None]
  - DIARRHOEA [None]
  - DIZZINESS [None]
  - FEELING ABNORMAL [None]
  - NAUSEA [None]
  - VOMITING [None]
